FAERS Safety Report 6740646-9 (Version None)
Quarter: 2010Q2

REPORT INFORMATION
  Report Type: 
  Country: None (occurrence: None)
  Receive Date: 20100521
  Receipt Date: 20100512
  Transmission Date: 20101027
  Serious: Yes (Other)
  Sender: FDA-Public Use
  Company Number: 009746

PATIENT
  Age: 33 Year
  Sex: Male

DRUGS (4)
  1. BUSULFEX [Suspect]
     Indication: STEM CELL TRANSPLANT
     Dosage: 16 MG/KG
  2. CYCLOPHOSPHAMIDE W VINCRISTINE PREDNISONE (CYCLOPHOSPHAMIDE, PREDNISON [Concomitant]
  3. METHOTREXATE [Concomitant]
  4. CYCLOSPORINE [Concomitant]

REACTIONS (2)
  - ACUTE GRAFT VERSUS HOST DISEASE IN LIVER [None]
  - AUTOIMMUNE HEPATITIS [None]
